FAERS Safety Report 21309051 (Version 1)
Quarter: 2022Q3

REPORT INFORMATION
  Report Type: Spontaneous
  Country: JP (occurrence: JP)
  Receive Date: 20220908
  Receipt Date: 20220908
  Transmission Date: 20221027
  Serious: Yes (Death)
  Sender: FDA-Public Use
  Company Number: JP-JNJFOC-20211210715

PATIENT
  Age: 40 Year
  Sex: Female

DRUGS (5)
  1. OPSUMIT [Suspect]
     Active Substance: MACITENTAN
     Indication: Pulmonary arterial hypertension
     Route: 048
     Dates: start: 20170112, end: 20211118
  2. METHIMAZOLE [Concomitant]
     Active Substance: METHIMAZOLE
     Route: 048
  3. AZOSEMIDE [Concomitant]
     Active Substance: AZOSEMIDE
     Route: 048
     Dates: start: 20190731
  4. SPIRONOLACTONE [Concomitant]
     Active Substance: SPIRONOLACTONE
     Route: 048
     Dates: start: 20190918
  5. ADCIRCA [Concomitant]
     Active Substance: TADALAFIL
     Indication: Pulmonary arterial hypertension
     Dates: start: 20171117, end: 20211118

REACTIONS (6)
  - Right ventricular failure [Fatal]
  - Multiple organ dysfunction syndrome [Fatal]
  - Pulmonary hypertension [Fatal]
  - Basedow^s disease [Fatal]
  - Physical deconditioning [Unknown]
  - Vomiting [Unknown]
